FAERS Safety Report 7449466-3 (Version None)
Quarter: 2011Q2

REPORT INFORMATION
  Report Type: 
  Country: None (occurrence: None)
  Receive Date: 20110502
  Receipt Date: 20110330
  Transmission Date: 20111010
  Serious: No
  Sender: FDA-Public Use
  Company Number: US-BAYER-2011-029617

PATIENT
  Age: 60 Year
  Sex: Female
  Weight: 77.098 kg

DRUGS (4)
  1. NAPROXEN SODIUM AND PSEUDOEPHEDRINE HYDROCHLORIDE [Suspect]
     Indication: SINUS HEADACHE
     Dosage: 1 DF, QD
     Route: 048
  2. SINGULAIR [Concomitant]
     Dosage: UNK UNK, QD
     Route: 048
  3. ALEVE-D SINUS + COLD [Suspect]
     Indication: SINUS HEADACHE
     Dosage: 1 DF, ONCE
     Route: 048
     Dates: start: 20110301, end: 20110301
  4. SPIRIVA [Concomitant]
     Dosage: UNK UNK, QD
     Route: 045

REACTIONS (1)
  - HYPOAESTHESIA [None]
